FAERS Safety Report 18047736 (Version 1)
Quarter: 2020Q3

REPORT INFORMATION
  Report Type: Spontaneous
  Country: US (occurrence: US)
  Receive Date: 20200720
  Receipt Date: 20200720
  Transmission Date: 20201103
  Serious: Yes (Hospitalization)
  Sender: FDA-Public Use
  Company Number: None

PATIENT
  Age: 61 Year
  Sex: Male
  Weight: 73 kg

DRUGS (11)
  1. METOPROLOL XL [Concomitant]
     Active Substance: METOPROLOL SUCCINATE
  2. PLAVIX [Concomitant]
     Active Substance: CLOPIDOGREL BISULFATE
     Dates: start: 20200716
  3. REMDESIVIR. [Suspect]
     Active Substance: REMDESIVIR
     Indication: COVID-19
     Route: 040
     Dates: start: 20200716
  4. INSULIN [Concomitant]
     Active Substance: INSULIN NOS
  5. PROTON IX [Concomitant]
  6. ATORVASTATIN [Concomitant]
     Active Substance: ATORVASTATIN
     Dates: start: 20200716
  7. DEXAMETHASONE. [Concomitant]
     Active Substance: DEXAMETHASONE
  8. LEVAQUIN [Concomitant]
     Active Substance: LEVOFLOXACIN
  9. LISINOPRIL. [Concomitant]
     Active Substance: LISINOPRIL
  10. LOVENOX [Concomitant]
     Active Substance: ENOXAPARIN SODIUM
  11. LASIX [Concomitant]
     Active Substance: FUROSEMIDE

REACTIONS (1)
  - Hypotension [None]

NARRATIVE: CASE EVENT DATE: 20200719
